FAERS Safety Report 9164402 (Version 1)
Quarter: 2013Q1

REPORT INFORMATION
  Report Type: Spontaneous
  Country: GB (occurrence: None)
  Receive Date: 20130226
  Receipt Date: 20130226
  Transmission Date: 20140127
  Serious: No
  Sender: FDA-Public Use
  Company Number: GER/UKI/13/0028154

PATIENT
  Age: 79 Year
  Sex: Male

DRUGS (1)
  1. SERTRALINE (SERTRALINE) (SERTRALINE) [Suspect]
     Indication: DEPRESSION
     Route: 048
     Dates: start: 20130202

REACTIONS (2)
  - Pain in extremity [None]
  - Restless legs syndrome [None]
